FAERS Safety Report 16660325 (Version 2)
Quarter: 2024Q4

REPORT INFORMATION
  Report Type: Spontaneous
  Country: US (occurrence: US)
  Receive Date: 20190802
  Receipt Date: 20241205
  Transmission Date: 20250115
  Serious: No
  Sender: JOHNSON AND JOHNSON
  Company Number: US-JNJFOC-20190801933

PATIENT
  Sex: Male

DRUGS (2)
  1. RISPERDAL [Suspect]
     Active Substance: RISPERIDONE
     Indication: Agitation
     Dosage: VARYING DOSE OF 0.5,1 AND 1.5 MG TWICE DAILY
     Route: 048
     Dates: start: 20100307
  2. RISPERDAL [Suspect]
     Active Substance: RISPERIDONE
     Indication: Affective disorder
     Route: 048
     Dates: start: 20130215, end: 20140421

REACTIONS (4)
  - Gynaecomastia [Unknown]
  - Emotional disorder [Unknown]
  - Obesity [Unknown]
  - Off label use [Unknown]
